FAERS Safety Report 5169718-X (Version None)
Quarter: 2006Q4

REPORT INFORMATION
  Report Type: 
  Country: None (occurrence: None)
  Receive Date: 20061212
  Receipt Date: 20061130
  Transmission Date: 20070319
  Serious: Yes (Hospitalization, Disabling, Other)
  Sender: FDA-Public Use
  Company Number: PHFR2006GB03529

PATIENT
  Age: 80 Year
  Sex: Male

DRUGS (6)
  1. BACLOFEN [Suspect]
     Indication: MUSCLE SPASMS
     Dosage: 5 MG, TID
     Route: 048
     Dates: start: 20060601
  2. ENALAPRIL MALEATE [Concomitant]
     Dosage: 10 MG, QD
     Route: 048
     Dates: start: 20020101
  3. FUROSEMIDE [Concomitant]
     Dosage: 40 MG, QD
     Route: 048
     Dates: start: 20040101
  4. MONOSORB [Concomitant]
     Dosage: 60MG UNK
     Route: 048
     Dates: start: 20040101
  5. SIMVASTATIN [Concomitant]
     Indication: BLOOD CHOLESTEROL INCREASED
     Dosage: 20 MG, QD
     Route: 048
     Dates: start: 20030401
  6. WARFARIN SODIUM [Concomitant]
     Dosage: UNK, UNK
     Route: 048
     Dates: start: 19990101

REACTIONS (8)
  - APHASIA [None]
  - DYSARTHRIA [None]
  - DYSPNOEA [None]
  - DYSSTASIA [None]
  - HYPOREFLEXIA [None]
  - SALIVARY HYPERSECRETION [None]
  - URINE OUTPUT DECREASED [None]
  - VISUAL DISTURBANCE [None]
